FAERS Safety Report 18082433 (Version 1)
Quarter: 2020Q3

REPORT INFORMATION
  Report Type: Other
  Country: US (occurrence: US)
  Receive Date: 20200729
  Receipt Date: 20200729
  Transmission Date: 20201103
  Serious: Yes (Other)
  Sender: FDA-Public Use
  Company Number: US-ROCHE-2628598

PATIENT
  Age: 29 Year
  Sex: Male
  Weight: 113.5 kg

DRUGS (8)
  1. PLENVU [Concomitant]
     Active Substance: ASCORBIC ACID\POLYETHYLENE GLYCOL 3350\POTASSIUM CHLORIDE\SODIUM ASCORBATE\SODIUM CHLORIDE\SODIUM SULFATE
     Dosage: 1 KIT BY MOUTH AS DIRECTED
     Route: 048
  2. PROTOPIC [Concomitant]
     Active Substance: TACROLIMUS
  3. OCREVUS [Suspect]
     Active Substance: OCRELIZUMAB
     Indication: OPTIC NEURITIS
  4. EXCEDRIN (UNITED STATES) [Concomitant]
     Indication: HEADACHE
  5. BUDESONIDE. [Concomitant]
     Active Substance: BUDESONIDE
     Indication: CROHN^S DISEASE
     Dates: start: 202002, end: 202005
  6. MIRALAX [Concomitant]
     Active Substance: POLYETHYLENE GLYCOL 3350
     Indication: CROHN^S DISEASE
     Dates: start: 202002
  7. OCREVUS [Suspect]
     Active Substance: OCRELIZUMAB
     Indication: RELAPSING-REMITTING MULTIPLE SCLEROSIS
     Dosage: DATES OF TREATMENT: 17/JAN/2019, 31/JAN/2019, 09/JUL/2019, 24/JAN/2020, 22/JUN/2020
     Route: 042
     Dates: start: 20190117
  8. PEPCID [Concomitant]
     Active Substance: FAMOTIDINE
     Indication: CROHN^S DISEASE
     Dosage: AS NEEDED
     Dates: start: 202002

REACTIONS (3)
  - Crohn^s disease [Not Recovered/Not Resolved]
  - Abdominal pain [Not Recovered/Not Resolved]
  - Multiple sclerosis [Not Recovered/Not Resolved]

NARRATIVE: CASE EVENT DATE: 20191101
